FAERS Safety Report 5097144-0 (Version None)
Quarter: 2006Q3

REPORT INFORMATION
  Report Type: 
  Country: None (occurrence: None)
  Receive Date: 20060824
  Receipt Date: 20060808
  Transmission Date: 20061208
  Serious: Yes (Other)
  Sender: FDA-Public Use
  Company Number: CHNY2006DE01855

PATIENT
  Age: 56 Year
  Sex: Male
  Weight: 80 kg

DRUGS (6)
  1. NICOTINELL LOZENGE (NCH)(NICOTINE) LOZENGE [Suspect]
     Indication: SMOKING CESSATION THERAPY
     Dosage: 4-5 LOZENGES DAILY, ORAL
     Route: 048
     Dates: start: 20060515, end: 20060529
  2. ACETYLSALICYLIC ACID SRT [Concomitant]
  3. ATORVASTATIN CALCIUM [Concomitant]
  4. METOPROLOL SUCCINATE [Concomitant]
  5. VESDIL 5 PLUS (HYDROCHLOROTHIAZIDE, RAMIPRIL) [Concomitant]
  6. CELLIDRIN (ALLOPURINOL) [Concomitant]

REACTIONS (7)
  - BLOOD PRESSURE DECREASED [None]
  - EYE SWELLING [None]
  - OEDEMA MUCOSAL [None]
  - PERIPHERAL VASCULAR DISORDER [None]
  - PRURITUS [None]
  - RASH GENERALISED [None]
  - SWELLING FACE [None]
